FAERS Safety Report 4608515-8 (Version None)
Quarter: 2005Q1

REPORT INFORMATION
  Report Type: 
  Country: None (occurrence: None)
  Receive Date: 20050310
  Receipt Date: 20050310
  Transmission Date: 20050727
  Serious: Yes (Life-Threatening)
  Sender: FDA-Public Use
  Company Number: None

PATIENT
  Sex: Male
  Weight: 5 kg

DRUGS (1)
  1. UNRELATED CORD BLOOD  21KN3805 [Suspect]

REACTIONS (1)
  - TRANSPLANT REJECTION [None]
